FAERS Safety Report 12649582 (Version 2)
Quarter: 2016Q3

REPORT INFORMATION
  Report Type: Report from Study
  Country: US (occurrence: US)
  Receive Date: 20160812
  Receipt Date: 20160920
  Transmission Date: 20161109
  Serious: Yes (Death, Hospitalization)
  Sender: FDA-Public Use
  Company Number: US-ASTRAZENECA-2016SE62164

PATIENT
  Sex: Female

DRUGS (1)
  1. LYNPARZA [Suspect]
     Active Substance: OLAPARIB
     Indication: FALLOPIAN TUBE CANCER
     Route: 048
     Dates: start: 20160519

REACTIONS (5)
  - Hallucination [Not Recovered/Not Resolved]
  - Fall [Recovering/Resolving]
  - Off label use [Unknown]
  - Death [Fatal]
  - Product use issue [Unknown]
